FAERS Safety Report 12782374 (Version 1)
Quarter: 2016Q3

REPORT INFORMATION
  Report Type: Spontaneous
  Country: US (occurrence: US)
  Receive Date: 20160922
  Receipt Date: 20160922
  Transmission Date: 20161109
  Serious: Yes (Hospitalization)
  Sender: FDA-Public Use
  Company Number: None

PATIENT
  Age: 57 Year
  Sex: Female
  Weight: 88.4 kg

DRUGS (2)
  1. HYDROCHLOROTHIAZIDE. [Suspect]
     Active Substance: HYDROCHLOROTHIAZIDE
     Indication: HYPERTENSION
     Route: 048
     Dates: start: 20150313, end: 20150816
  2. CLONIDINE. [Suspect]
     Active Substance: CLONIDINE
     Indication: HYPERTENSION
     Route: 048
     Dates: start: 20140407, end: 20160817

REACTIONS (4)
  - Orthostatic hypertension [None]
  - Hypotension [None]
  - Syncope [None]
  - Presyncope [None]

NARRATIVE: CASE EVENT DATE: 20160816
